FAERS Safety Report 25013955 (Version 1)
Quarter: 2025Q1

REPORT INFORMATION
  Report Type: Spontaneous
  Country: FR (occurrence: FR)
  Receive Date: 20250226
  Receipt Date: 20250226
  Transmission Date: 20250409
  Serious: Yes (Other)
  Sender: NOVARTIS
  Company Number: FR-002147023-NVSC2025FR030505

PATIENT
  Sex: Male

DRUGS (3)
  1. CAPMATINIB [Suspect]
     Active Substance: CAPMATINIB
     Indication: Non-small cell lung cancer
     Route: 065
     Dates: start: 20200818
  2. CAPMATINIB [Suspect]
     Active Substance: CAPMATINIB
     Dosage: 200 MG, QD (MORNING AND EVENING)
     Route: 065
     Dates: start: 20240524
  3. CAPMATINIB [Suspect]
     Active Substance: CAPMATINIB
     Dosage: 600 MG, QD
     Route: 065
     Dates: start: 20250217

REACTIONS (3)
  - Malignant neoplasm progression [Unknown]
  - Non-small cell lung cancer [Unknown]
  - Intentional product use issue [Unknown]

NARRATIVE: CASE EVENT DATE: 20240524
